FAERS Safety Report 6975411-0 (Version None)
Quarter: 2010Q3

REPORT INFORMATION
  Report Type: 
  Country: None (occurrence: None)
  Receive Date: 20100910
  Receipt Date: 20090323
  Transmission Date: 20110219
  Serious: No
  Sender: FDA-Public Use
  Company Number: US-WYE-H08677009

PATIENT
  Sex: Female
  Weight: 108.96 kg

DRUGS (1)
  1. PRISTIQ [Suspect]
     Indication: DEPRESSION
     Route: 048
     Dates: start: 20090318, end: 20090319

REACTIONS (4)
  - APNOEA [None]
  - DECREASED APPETITE [None]
  - DYSPNOEA [None]
  - NAUSEA [None]
